FAERS Safety Report 12503615 (Version 1)
Quarter: 2016Q2

REPORT INFORMATION
  Report Type: Other
  Country: IS (occurrence: IS)
  Receive Date: 20160628
  Receipt Date: 20160628
  Transmission Date: 20160815
  Serious: Yes (Other)
  Sender: FDA-Public Use
  Company Number: IS-ASTELLAS-2016US024216

PATIENT
  Age: 74 Year
  Sex: Male

DRUGS (1)
  1. BETMIGA [Suspect]
     Active Substance: MIRABEGRON
     Indication: HYPERTONIC BLADDER
     Route: 065

REACTIONS (2)
  - Dizziness [Unknown]
  - Arrhythmia supraventricular [Unknown]

NARRATIVE: CASE EVENT DATE: 20150110
